FAERS Safety Report 7433012-4 (Version None)
Quarter: 2011Q2

REPORT INFORMATION
  Report Type: 
  Country: None (occurrence: None)
  Receive Date: 20110422
  Receipt Date: 20110413
  Transmission Date: 20111010
  Serious: No
  Sender: FDA-Public Use
  Company Number: US-B.I. PHARMACEUTICALS,INC./RIDGEFIELD-2011-BP-01375BP

PATIENT
  Age: 78 Year
  Sex: Male
  Weight: 86.18 kg

DRUGS (9)
  1. ASPIRIN [Concomitant]
     Dosage: 81 MG
  2. PRADAXA [Suspect]
     Indication: ATRIAL FIBRILLATION
     Dosage: 300 MG
     Route: 048
     Dates: start: 20110111, end: 20110201
  3. PRADAXA [Suspect]
     Indication: ANTICOAGULANT THERAPY
  4. TERAZOSIN [Concomitant]
     Dosage: 150 MG
  5. CARVEDILOL [Concomitant]
     Dosage: 12.5 MG
  6. RANITIDINE [Concomitant]
     Dosage: 150 MG
  7. LISINOPRIL [Concomitant]
     Dosage: 20 MG
  8. GABAPENTIN [Concomitant]
     Dosage: 300 MG
  9. LIPITOR [Concomitant]
     Dosage: 40 MG

REACTIONS (4)
  - ABDOMINAL PAIN UPPER [None]
  - OESOPHAGEAL PAIN [None]
  - DYSPEPSIA [None]
  - DYSPHAGIA [None]
